FAERS Safety Report 11275092 (Version 1)
Quarter: 2015Q3

REPORT INFORMATION
  Report Type: Spontaneous
  Country: FR (occurrence: FR)
  Receive Date: 20150716
  Receipt Date: 20150716
  Transmission Date: 20151125
  Serious: Yes (Hospitalization)
  Sender: FDA-Public Use
  Company Number: FR-009507513-1507FRA005740

PATIENT
  Age: 26 Year
  Sex: Female

DRUGS (8)
  1. DECAPEPTYL [Suspect]
     Active Substance: TRIPTORELIN ACETATE
     Dosage: 1 DF, QD
     Route: 058
     Dates: start: 20150327, end: 20150330
  2. GONAL-F [Suspect]
     Active Substance: FOLLITROPIN
     Dosage: 100 IU, QD
     Route: 058
     Dates: start: 20150327, end: 20150330
  3. GONAL-F [Suspect]
     Active Substance: FOLLITROPIN
     Dosage: 175 IU, QD
     Route: 058
     Dates: start: 20150331, end: 20150401
  4. GONAL-F [Suspect]
     Active Substance: FOLLITROPIN
     Dosage: 200 IU, QD
     Route: 058
     Dates: start: 20150402, end: 20150402
  5. GONAL-F [Suspect]
     Active Substance: FOLLITROPIN
     Dosage: 225 IU, QD
     Route: 058
     Dates: start: 20150403, end: 20150405
  6. DECAPEPTYL [Suspect]
     Active Substance: TRIPTORELIN ACETATE
     Dosage: 0.5 DF, QD
     Route: 058
     Dates: start: 20150331, end: 20150407
  7. GONADOTROPHINE CHORIONIQUE ENDO 1500 UI/1ML [Suspect]
     Active Substance: GONADOTROPHIN, CHORIONIC
     Dosage: 1 DF, QD
     Route: 030
     Dates: start: 20150408, end: 20150408
  8. GONAL-F [Suspect]
     Active Substance: FOLLITROPIN
     Dosage: 300 IU, QD
     Route: 058
     Dates: start: 20150406, end: 20150407

REACTIONS (2)
  - Ovarian hyperstimulation syndrome [Recovering/Resolving]
  - Peritoneal haemorrhage [Recovered/Resolved]

NARRATIVE: CASE EVENT DATE: 20150410
